FAERS Safety Report 6467135-3 (Version None)
Quarter: 2009Q4

REPORT INFORMATION
  Report Type: 
  Country: None (occurrence: None)
  Receive Date: 20091202
  Receipt Date: 20091124
  Transmission Date: 20100525
  Serious: Yes (Hospitalization, Other)
  Sender: FDA-Public Use
  Company Number: DE-ABBOTT-09P-062-0610494-00

PATIENT
  Sex: Male

DRUGS (3)
  1. HUMIRA [Suspect]
     Indication: CROHN'S DISEASE
     Dates: start: 20090701, end: 20091030
  2. AZATHIOPRINE [Interacting]
     Indication: CROHN'S DISEASE
  3. ACNE MEDICATION (NOT SPECIFIED) [Concomitant]
     Indication: ACNE

REACTIONS (4)
  - DRUG INTERACTION [None]
  - HEPATIC ENZYME INCREASED [None]
  - LEUKOPENIA [None]
  - PYREXIA [None]
